FAERS Safety Report 7171544-7 (Version None)
Quarter: 2010Q4

REPORT INFORMATION
  Report Type: 
  Country: None (occurrence: None)
  Receive Date: 20101217
  Receipt Date: 20101213
  Transmission Date: 20110411
  Serious: Yes (Other)
  Sender: FDA-Public Use
  Company Number: CN-PFIZER INC-2010169748

PATIENT

DRUGS (1)
  1. ZYVOX [Suspect]
     Dosage: 600 MG,  Q 12H
     Dates: start: 20101211

REACTIONS (4)
  - HYPOCHLORAEMIA [None]
  - HYPONATRAEMIA [None]
  - NAUSEA [None]
  - VOMITING [None]
